FAERS Safety Report 14009665 (Version 2)
Quarter: 2017Q4

REPORT INFORMATION
  Report Type: Spontaneous
  Country: US (occurrence: US)
  Receive Date: 20170925
  Receipt Date: 20171219
  Transmission Date: 20180321
  Serious: No
  Sender: FDA-Public Use
  Company Number: US-APOTEX-2017AP016242

PATIENT
  Age: 67 Year
  Sex: Female
  Weight: 64.4 kg

DRUGS (6)
  1. CLARISPRAY NASAL ALLERGY [Suspect]
     Active Substance: FLUTICASONE PROPIONATE
     Indication: HYPERSENSITIVITY
     Dosage: 1 SPRAY, Q.AM
     Route: 045
     Dates: start: 2016, end: 201705
  2. CLARITIN [Suspect]
     Active Substance: LORATADINE
     Indication: NASOPHARYNGITIS
  3. VITAMIN E                          /00110501/ [Concomitant]
     Active Substance: TOCOPHEROL
     Indication: PRODUCT USED FOR UNKNOWN INDICATION
     Dosage: UNK
     Route: 065
  4. CLARISPRAY NASAL ALLERGY [Suspect]
     Active Substance: FLUTICASONE PROPIONATE
     Indication: NASOPHARYNGITIS
  5. CLARITIN [Suspect]
     Active Substance: LORATADINE
     Indication: HYPERSENSITIVITY
     Dosage: ONE LIQUID GEL EVERY MORNING
     Route: 048
     Dates: start: 20170719, end: 20170725
  6. SYNTHROID [Concomitant]
     Active Substance: LEVOTHYROXINE SODIUM
     Indication: PRODUCT USED FOR UNKNOWN INDICATION
     Dosage: UNK
     Route: 065

REACTIONS (2)
  - Dysuria [Recovered/Resolved]
  - Drug resistance [Unknown]

NARRATIVE: CASE EVENT DATE: 201705
